FAERS Safety Report 22065757 (Version 4)
Quarter: 2023Q2

REPORT INFORMATION
  Report Type: Spontaneous
  Country: US (occurrence: US)
  Receive Date: 20230306
  Receipt Date: 20230512
  Transmission Date: 20230721
  Serious: No
  Sender: FDA-Public Use
  Company Number: US-PFIZER INC-PV202300040408

PATIENT
  Age: 69 Year
  Sex: Female
  Weight: 110.2 kg

DRUGS (2)
  1. SULFASALAZINE [Suspect]
     Active Substance: SULFASALAZINE
     Indication: Psoriatic arthropathy
     Dosage: 1500 MG, 2X/DAY
     Route: 048
     Dates: start: 201708, end: 202206
  2. SULFASALAZINE [Suspect]
     Active Substance: SULFASALAZINE
     Dosage: UNK
     Dates: end: 202209

REACTIONS (2)
  - Alopecia [Unknown]
  - Off label use [Unknown]
